FAERS Safety Report 17970057 (Version 2)
Quarter: 2020Q3

REPORT INFORMATION
  Report Type: Spontaneous
  Country: US (occurrence: US)
  Receive Date: 20200701
  Receipt Date: 20200727
  Transmission Date: 20201103
  Serious: Yes (Hospitalization)
  Sender: FDA-Public Use
  Company Number: US-ACTELION-A-NJ2020-206515

PATIENT
  Sex: Female
  Weight: 45.35 kg

DRUGS (2)
  1. OPSUMIT [Suspect]
     Active Substance: MACITENTAN
     Indication: PULMONARY ARTERIAL HYPERTENSION
     Dosage: UNK
     Route: 048
  2. UPTRAVI [Concomitant]
     Active Substance: SELEXIPAG
     Indication: PULMONARY ARTERIAL HYPERTENSION
     Dosage: UNK
     Route: 048

REACTIONS (9)
  - Hip fracture [Unknown]
  - Hemiplegia [Recovering/Resolving]
  - Hypotension [Unknown]
  - Gastric mucosal lesion [Unknown]
  - Asthenia [Unknown]
  - Cerebrovascular accident [Unknown]
  - Fall [Unknown]
  - Foot fracture [Unknown]
  - Pneumonia [Unknown]
